FAERS Safety Report 7245123-7 (Version None)
Quarter: 2011Q1

REPORT INFORMATION
  Report Type: 
  Country: None (occurrence: None)
  Receive Date: 20110126
  Receipt Date: 20110114
  Transmission Date: 20110831
  Serious: Yes (Other)
  Sender: FDA-Public Use
  Company Number: DE-SANOFI-AVENTIS-2010SA076411

PATIENT
  Age: 73 Year
  Sex: Female

DRUGS (8)
  1. SIMVASTATIN [Concomitant]
     Route: 065
  2. AMLODIPINE [Concomitant]
     Route: 065
  3. RAMIPRIL [Concomitant]
     Dosage: DOSAGE: 1/2 TABLET DAILY
     Route: 065
  4. MULTAQ [Suspect]
     Indication: ATRIAL FIBRILLATION
     Route: 048
     Dates: start: 20100801
  5. METFORMIN HCL [Concomitant]
     Route: 065
  6. DOXAZOSIN [Concomitant]
     Dosage: DOSAGE: 2-0-2
     Route: 065
  7. CLEXANE [Concomitant]
     Route: 058
  8. LEVOTHYROXINE SODIUM [Concomitant]
     Route: 065

REACTIONS (3)
  - BLOOD CREATININE INCREASED [None]
  - RENAL FAILURE [None]
  - GLOMERULAR FILTRATION RATE DECREASED [None]
